FAERS Safety Report 25552501 (Version 1)
Quarter: 2025Q3

REPORT INFORMATION
  Report Type: Spontaneous
  Country: AE (occurrence: AE)
  Receive Date: 20250715
  Receipt Date: 20250715
  Transmission Date: 20251021
  Serious: Yes (Hospitalization)
  Sender: JOHNSON AND JOHNSON
  Company Number: AE-JNJFOC-20250709889

PATIENT
  Age: 54 Year
  Sex: Male

DRUGS (6)
  1. RISPERIDONE [Suspect]
     Active Substance: RISPERIDONE
     Indication: Bipolar disorder
     Route: 065
  2. RISPERIDONE [Suspect]
     Active Substance: RISPERIDONE
     Route: 065
  3. RISPERIDONE [Suspect]
     Active Substance: RISPERIDONE
  4. RISPERIDONE [Suspect]
     Active Substance: RISPERIDONE
  5. RISPERIDONE [Suspect]
     Active Substance: RISPERIDONE
  6. RISPERIDONE [Suspect]
     Active Substance: RISPERIDONE

REACTIONS (8)
  - Lower urinary tract symptoms [Recovering/Resolving]
  - Urinary retention [Recovered/Resolved]
  - Hydronephrosis [Recovered/Resolved]
  - Bladder hypertrophy [Recovering/Resolving]
  - Cystitis haemorrhagic [Recovering/Resolving]
  - Polypoid cystitis [Recovering/Resolving]
  - Hydroureter [Recovering/Resolving]
  - Blood creatinine increased [Recovering/Resolving]
